FAERS Safety Report 6622171-9 (Version None)
Quarter: 2010Q1

REPORT INFORMATION
  Report Type: 
  Country: None (occurrence: None)
  Receive Date: 20100305
  Receipt Date: 20100218
  Transmission Date: 20100710
  Serious: Yes (Death, Hospitalization, Disabling, Other)
  Sender: FDA-Public Use
  Company Number: 2009003954

PATIENT
  Age: 61 Year
  Sex: Female

DRUGS (17)
  1. ERLOTINIB HYDROCHLORIDE [Suspect]
     Indication: ADENOCARCINOMA PANCREAS
     Dosage: (100 MG,QD), ORAL
     Route: 048
     Dates: start: 20090818, end: 20091207
  2. GEMCITABINE HYDROCHLORIDE [Suspect]
     Indication: PANCREATIC CARCINOMA
     Dosage: (1000 MG/M2,Q1W) , INTRAVENOUS
     Route: 042
     Dates: start: 20090818, end: 20091124
  3. PANITUMUMAB [Suspect]
     Indication: PANCREATIC CARCINOMA
     Dosage: (4 MG/KG,Q2W), INRAVENOUS
     Route: 042
     Dates: start: 20090818, end: 20091124
  4. IPRATROPIUM BROMIDE [Concomitant]
  5. ONDANSETRON HYDROCHLORIDE (ONDANESTRON HYDROCHLORIDE) [Concomitant]
  6. FENTANYL-100 [Concomitant]
  7. MAGNESIUM OXIDE (MAGNESIUM OXIDE) [Concomitant]
  8. DEXTRIFERRON (DEXTRIFERRON) [Concomitant]
  9. PROCHLORPERAZINE MALEATE [Concomitant]
  10. PREGABALIN [Concomitant]
  11. DULOXETINE HYDROCHLORIDE [Concomitant]
  12. LOTREL [Concomitant]
  13. FEXOFENADINE HYDROCHLORIDE [Concomitant]
  14. LANSOPRAZOLE [Concomitant]
  15. FUROSEMIDE [Concomitant]
  16. POTASSIUM CHLORIDE [Concomitant]
  17. ALBUTEROL [Concomitant]

REACTIONS (15)
  - ACUTE RESPIRATORY DISTRESS SYNDROME [None]
  - ANAEMIA [None]
  - ANXIETY [None]
  - ATELECTASIS [None]
  - CARDIO-RESPIRATORY ARREST [None]
  - CARDIOMEGALY [None]
  - DYSPNOEA EXERTIONAL [None]
  - GENERAL PHYSICAL HEALTH DETERIORATION [None]
  - HYPOXIA [None]
  - LUNG CONSOLIDATION [None]
  - MALIGNANT NEOPLASM PROGRESSION [None]
  - MULTI-ORGAN FAILURE [None]
  - PANCREATIC CARCINOMA METASTATIC [None]
  - PNEUMONIA [None]
  - RENAL FAILURE [None]
